FAERS Safety Report 7492059-2 (Version None)
Quarter: 2011Q2

REPORT INFORMATION
  Report Type: 
  Country: None (occurrence: None)
  Receive Date: 20110519
  Receipt Date: 20110516
  Transmission Date: 20111010
  Serious: Yes (Other)
  Sender: FDA-Public Use
  Company Number: US-CEPHALON-2011002423

PATIENT
  Age: 82 Year
  Sex: Female

DRUGS (3)
  1. RITUXIMAB [Suspect]
     Dates: end: 20110101
  2. TREANDA [Suspect]
     Indication: CHRONIC LYMPHOCYTIC LEUKAEMIA
     Route: 042
     Dates: end: 20110101
  3. TREANDA [Suspect]
     Indication: B-CELL LYMPHOMA

REACTIONS (1)
  - RASH FOLLICULAR [None]
